FAERS Safety Report 4431753-4 (Version None)
Quarter: 2004Q3

REPORT INFORMATION
  Report Type: 
  Country: None (occurrence: None)
  Receive Date: 20040823
  Receipt Date: 20040823
  Transmission Date: 20050211
  Serious: Yes (Hospitalization)
  Sender: FDA-Public Use
  Company Number: None

PATIENT
  Age: 64 Year
  Sex: Male
  Weight: 74 kg

DRUGS (13)
  1. ZOCOR [Suspect]
     Indication: BLOOD CHOLESTEROL
  2. LOPID [Suspect]
     Indication: BLOOD CHOLESTEROL
  3. DIFLUCAN [Concomitant]
  4. ZOVIRAX [Concomitant]
  5. NEURONTIN [Concomitant]
  6. CELLCEPT [Concomitant]
  7. ELAVIL [Concomitant]
  8. TENORMIN [Concomitant]
  9. LASIX [Concomitant]
  10. VICODIN [Concomitant]
  11. NEORAL [Concomitant]
  12. PRILOSEC [Concomitant]
  13. APAP TAB [Concomitant]

REACTIONS (1)
  - RHABDOMYOLYSIS [None]
